FAERS Safety Report 7208140-9 (Version None)
Quarter: 2011Q1

REPORT INFORMATION
  Report Type: 
  Country: None (occurrence: None)
  Receive Date: 20110104
  Receipt Date: 20101229
  Transmission Date: 20110831
  Serious: Yes (Disabling)
  Sender: FDA-Public Use
  Company Number: US-CEPHALON-2010005997

PATIENT
  Age: 30 Year
  Sex: Female
  Weight: 128 kg

DRUGS (1)
  1. NUVIGIL [Suspect]
     Indication: NARCOLEPSY
     Route: 048
     Dates: start: 20100801, end: 20100826

REACTIONS (3)
  - PRURITUS [None]
  - OEDEMA PERIPHERAL [None]
  - HEADACHE [None]
